FAERS Safety Report 10874676 (Version 2)
Quarter: 2015Q1

REPORT INFORMATION
  Report Type: Spontaneous
  Country: JP (occurrence: JP)
  Receive Date: 20150227
  Receipt Date: 20150310
  Transmission Date: 20150721
  Serious: Yes (Other)
  Sender: FDA-Public Use
  Company Number: JP-GLAXOSMITHKLINE-JP2015JPN007994

PATIENT
  Age: 17 Year
  Sex: Female

DRUGS (3)
  1. LAMICTAL [Suspect]
     Active Substance: LAMOTRIGINE
     Indication: SEIZURE
  2. LAMICTAL [Suspect]
     Active Substance: LAMOTRIGINE
     Indication: EPILEPSY
     Dosage: 25 MG, QD
     Route: 048
     Dates: start: 20141218, end: 20141218
  3. MYSTAN [Concomitant]
     Active Substance: CLOBAZAM
     Dosage: 0.1 G, QD

REACTIONS (3)
  - Malaise [Recovered/Resolved]
  - Immobile [Recovered/Resolved]
  - Nausea [Recovered/Resolved]

NARRATIVE: CASE EVENT DATE: 201412
